FAERS Safety Report 7789876-8 (Version None)
Quarter: 2011Q3

REPORT INFORMATION
  Report Type: 
  Country: None (occurrence: None)
  Receive Date: 20110930
  Receipt Date: 20110224
  Transmission Date: 20111222
  Serious: No
  Sender: FDA-Public Use
  Company Number: US-ASTRAZENECA-2011SE10555

PATIENT
  Age: 51 Year
  Sex: Female
  Weight: 59 kg

DRUGS (3)
  1. FOSAMAX [Concomitant]
  2. ARIMIDEX [Suspect]
     Route: 048
  3. VITAMIN TAB [Concomitant]

REACTIONS (2)
  - JOINT CREPITATION [None]
  - MUSCULOSKELETAL DISCOMFORT [None]
